FAERS Safety Report 18869984 (Version 2)
Quarter: 2021Q1

REPORT INFORMATION
  Report Type: Spontaneous
  Country: FR (occurrence: FR)
  Receive Date: 20210209
  Receipt Date: 20210216
  Transmission Date: 20210420
  Serious: Yes (Other)
  Sender: FDA-Public Use
  Company Number: FR-TEVA-2021-FR-1878127

PATIENT
  Age: 88 Year
  Sex: Female

DRUGS (2)
  1. CHLORAMINOPHENE [Suspect]
     Active Substance: CHLORAMBUCIL
     Indication: PROLYMPHOCYTIC LEUKAEMIA
     Route: 048
     Dates: start: 20200416, end: 202011
  2. LEVACT [Suspect]
     Active Substance: BENDAMUSTINE HYDROCHLORIDE
     Indication: PROLYMPHOCYTIC LEUKAEMIA
     Route: 041
     Dates: start: 20200716, end: 202011

REACTIONS (2)
  - Product use in unapproved indication [Unknown]
  - Aphthous ulcer [Not Recovered/Not Resolved]

NARRATIVE: CASE EVENT DATE: 20200716
